FAERS Safety Report 13910428 (Version 1)
Quarter: 2017Q3

REPORT INFORMATION
  Report Type: Spontaneous
  Country: US (occurrence: US)
  Receive Date: 20170825
  Receipt Date: 20170825
  Transmission Date: 20171127
  Serious: Yes (Disabling)
  Sender: FDA-Public Use
  Company Number: None

PATIENT
  Sex: Female
  Weight: 67.5 kg

DRUGS (1)
  1. LEVAQUIN [Suspect]
     Active Substance: LEVOFLOXACIN
     Indication: PNEUMONIA
     Dosage: ?          QUANTITY:1 TABLET(S);?
     Route: 048
     Dates: start: 20151104, end: 20151114

REACTIONS (7)
  - Mood altered [None]
  - Neck pain [None]
  - Back pain [None]
  - Arthralgia [None]
  - Tendonitis [None]
  - Headache [None]
  - Insomnia [None]

NARRATIVE: CASE EVENT DATE: 20151120
